FAERS Safety Report 7543927 (Version 2)
Quarter: 2012Q4

REPORT INFORMATION
  Report Type: 
  Country: US (occurrence: US)
  Receive Date: 20100817
  Receipt Date: 20121018
  Transmission Date: 20130627
  Serious: Yes (Hospitalization, Other)
  Sender: FDA-Public Use
  Company Number: US-ELI_LILLY_AND_COMPANY-US201008002220

PATIENT
  Sex: Female

DRUGS (5)
  1. BYETTA [Suspect]
     Dosage: 5 ug, bid
     Route: 058
  2. BYETTA [Suspect]
     Dosage: 10 ug, bid
     Route: 058
     Dates: start: 20070621
  3. BYETTA [Suspect]
     Dosage: 10 ug, qd
     Route: 058
  4. BYETTA [Suspect]
     Dosage: 10 ug, bid
     Route: 058
     Dates: start: 20070907
  5. BYETTA [Suspect]
     Dosage: 5 ug, bid
     Route: 058
     Dates: start: 20080609

REACTIONS (4)
  - Adenocarcinoma pancreas [Unknown]
  - Metastatic neoplasm [Unknown]
  - Pancreatitis [Unknown]
  - Injury [Unknown]
